FAERS Safety Report 7020171-0 (Version None)
Quarter: 2010Q3

REPORT INFORMATION
  Report Type: 
  Country: None (occurrence: None)
  Receive Date: 20100927
  Receipt Date: 20100917
  Transmission Date: 20110219
  Serious: Yes (Hospitalization)
  Sender: FDA-Public Use
  Company Number: TPA2010A04862

PATIENT
  Age: 52 Year
  Sex: Male
  Weight: 118.8424 kg

DRUGS (21)
  1. ACTOS [Suspect]
     Indication: TYPE 2 DIABETES MELLITUS
     Dosage: 45 MG, 1 IN 1 D, PER ORAL
     Route: 048
     Dates: start: 20010910, end: 20100910
  2. UNKNOWN INSULIN (INSULIN) [Concomitant]
  3. CLOZAPINE [Concomitant]
  4. DEPAKOTE [Concomitant]
  5. CELEXA [Concomitant]
  6. KLONOPIN [Concomitant]
  7. CATAPRES [Concomitant]
  8. INVEGA (ALL OTHER THERAPEUTIC PRODUCTS) [Concomitant]
  9. INVEGA SUSTENNA (ALL OTHER THERAPEUTIC PRODUCTS) [Concomitant]
  10. METFORMIN HCL [Concomitant]
  11. PREVACID [Concomitant]
  12. LISINOPRIL [Concomitant]
  13. LANTUS [Concomitant]
  14. ASPIRIN [Concomitant]
  15. VITAMIN D [Concomitant]
  16. LORATADINE [Concomitant]
  17. LECITHIN (LECITHIN) [Concomitant]
  18. LOVAZA [Concomitant]
  19. VITAMINS WITH MINERALS (VITAMINS WITH MINERALS) [Concomitant]
  20. PRAMOXINE HYDROCHLORIDE (PRAMOCAINE HYDROCHLORIDE) [Concomitant]
  21. FOLIC ACID [Concomitant]

REACTIONS (2)
  - ANKLE FRACTURE [None]
  - FRACTURE DISPLACEMENT [None]
